FAERS Safety Report 15230925 (Version 1)
Quarter: 2020Q3

REPORT INFORMATION
  Report Type: Report from Study
  Country: ES (occurrence: ES)
  Receive Date: 20180802
  Receipt Date: 20180802
  Transmission Date: 20201104
  Serious: Yes (Death, Hospitalization)
  Sender: FDA-Public Use
  Company Number: ES-AXELLIA-001812

PATIENT
  Age: 68 Year
  Sex: Female

DRUGS (10)
  1. RANITIDINE. [Concomitant]
     Active Substance: RANITIDINE
     Dosage: 300 MG IN DINNER
     Route: 048
     Dates: start: 20170822
  2. POSACONAZOLE [Concomitant]
     Active Substance: POSACONAZOLE
     Dosage: 300 MG DAY
     Route: 048
     Dates: start: 20170822
  3. CYTARABINE/CYTARABINE HYDROCHLORIDE/CYTARABINE OCFOSFATE [Suspect]
     Active Substance: CYTARABINE
     Indication: ACUTE MYELOID LEUKAEMIA
     Route: 042
     Dates: start: 20170921, end: 20170927
  4. FLUDARABINE [Suspect]
     Active Substance: FLUDARABINE PHOSPHATE
     Indication: ACUTE MYELOID LEUKAEMIA
     Dates: start: 20170921, end: 20170926
  5. ACICLOVIR [Concomitant]
     Active Substance: ACYCLOVIR
     Dosage: 800 MG EVERY 12 HOURS
     Route: 048
     Dates: start: 20170822
  6. COLISTIN [Suspect]
     Active Substance: COLISTIN
     Indication: SEPSIS
     Dosage: 2 MLL/12H
     Route: 042
     Dates: start: 20171003, end: 20171006
  7. AMIKACIN. [Suspect]
     Active Substance: AMIKACIN
     Indication: SEPSIS
     Dosage: 1 GR EVERY 24 HOURS
     Route: 042
     Dates: start: 20171003, end: 20171004
  8. IDARUBICIN [Suspect]
     Active Substance: IDARUBICIN
     Indication: ACUTE MYELOID LEUKAEMIA
     Route: 042
     Dates: start: 20170921, end: 20170925
  9. ALLOPURINOL. [Concomitant]
     Active Substance: ALLOPURINOL
     Dosage: 300 MG DAY
     Route: 048
     Dates: start: 20170822
  10. ONDANSETRON [Concomitant]
     Active Substance: ONDANSETRON
     Dosage: 8 MG/8H
     Route: 042
     Dates: start: 20170822

REACTIONS (2)
  - Hypokalaemia [Not Recovered/Not Resolved]
  - Multiple organ dysfunction syndrome [None]

NARRATIVE: CASE EVENT DATE: 20171005
